FAERS Safety Report 12218464 (Version 1)
Quarter: 2016Q1

REPORT INFORMATION
  Report Type: Spontaneous
  Country: GB (occurrence: GB)
  Receive Date: 20160329
  Receipt Date: 20160329
  Transmission Date: 20160526
  Serious: Yes (Other)
  Sender: FDA-Public Use
  Company Number: GB-GE HEALTHCARE MEDICAL DIAGNOSTICS-2915056-2016-00003

PATIENT
  Sex: Male

DRUGS (2)
  1. RAPIDSTRAND IODINE I125 SEEDS [Suspect]
     Active Substance: IODINE I-125
     Indication: THERAPEUTIC PROCEDURE
  2. RAPIDSTRAND IODINE I125 SEEDS [Suspect]
     Active Substance: IODINE I-125
     Indication: PROSTATE CANCER
     Dosage: DOSE NOT REPORTED
     Route: 050

REACTIONS (2)
  - No adverse event [Recovered/Resolved]
  - Device malfunction [Unknown]

NARRATIVE: CASE EVENT DATE: 20160215
